FAERS Safety Report 11222324 (Version 3)
Quarter: 2015Q3

REPORT INFORMATION
  Report Type: Spontaneous
  Country: US (occurrence: US)
  Receive Date: 20150626
  Receipt Date: 20150928
  Transmission Date: 20151125
  Serious: Yes (Other)
  Sender: FDA-Public Use
  Company Number: US-BAYER-2015-362142

PATIENT
  Age: 71 Year
  Sex: Male
  Weight: 190 kg

DRUGS (6)
  1. XOFIGO [Suspect]
     Active Substance: RADIUM RA-223 DICHLORIDE
     Indication: METASTASES TO BONE
  2. XGEVA [Concomitant]
     Active Substance: DENOSUMAB
  3. PREDNISONE. [Concomitant]
     Active Substance: PREDNISONE
  4. XOFIGO [Suspect]
     Active Substance: RADIUM RA-223 DICHLORIDE
     Indication: BACK PAIN
  5. XTANDI [Concomitant]
     Active Substance: ENZALUTAMIDE
  6. XOFIGO [Suspect]
     Active Substance: RADIUM RA-223 DICHLORIDE
     Indication: PROSTATE CANCER
     Dosage: 6 CYCLES OF RADIUM-223
     Dates: start: 201501, end: 201505

REACTIONS (2)
  - Anaemia [None]
  - Bone marrow tumour cell infiltration [None]

NARRATIVE: CASE EVENT DATE: 201505
